FAERS Safety Report 21812616 (Version 2)
Quarter: 2023Q1

REPORT INFORMATION
  Report Type: Spontaneous
  Country: CA (occurrence: CA)
  Receive Date: 20230103
  Receipt Date: 20230202
  Transmission Date: 20230417
  Serious: Yes (Death, Other)
  Sender: FDA-Public Use
  Company Number: CA-PFIZER INC-202201402795

PATIENT
  Age: 77 Year
  Sex: Male

DRUGS (4)
  1. VYNDAQEL [Suspect]
     Active Substance: TAFAMIDIS MEGLUMINE
     Indication: Cardiac amyloidosis
     Dosage: 80 MG, 1X/DAY
     Route: 048
     Dates: start: 20220105
  2. BISOPROLOL [Concomitant]
     Active Substance: BISOPROLOL
  3. TAMSULOSIN [Concomitant]
     Active Substance: TAMSULOSIN
  4. ROSUVASTATIN [Concomitant]
     Active Substance: ROSUVASTATIN

REACTIONS (3)
  - Cardiac failure [Fatal]
  - Cardiac amyloidosis [Fatal]
  - Disease progression [Fatal]

NARRATIVE: CASE EVENT DATE: 20221101
